FAERS Safety Report 10045739 (Version 2)
Quarter: 2014Q2

REPORT INFORMATION
  Report Type: Report from Study
  Country: TW (occurrence: TW)
  Receive Date: 20140328
  Receipt Date: 20140502
  Transmission Date: 20141212
  Serious: Yes (Death, Life-Threatening, Hospitalization)
  Sender: FDA-Public Use
  Company Number: TW-ABBVIE-14P-153-1216915-00

PATIENT
  Age: 77 Year
  Sex: Female
  Weight: 64.3 kg

DRUGS (1)
  1. HUMIRA [Suspect]
     Indication: RHEUMATOID ARTHRITIS
     Route: 058
     Dates: start: 20140210, end: 20140324

REACTIONS (14)
  - Pleural effusion [Fatal]
  - Pulmonary oedema [Unknown]
  - Somnolence [Unknown]
  - Dyspnoea [Unknown]
  - Dyspnoea [Unknown]
  - Tachypnoea [Unknown]
  - Asthenia [Unknown]
  - Dyspnoea [Unknown]
  - Pyrexia [Fatal]
  - Emphysema [Fatal]
  - Pulmonary fibrosis [Fatal]
  - Mediastinitis [Fatal]
  - Dysphoria [Fatal]
  - Sepsis [Fatal]
